FAERS Safety Report 23505396 (Version 1)
Quarter: 2024Q1

REPORT INFORMATION
  Report Type: Spontaneous
  Country: US (occurrence: None)
  Receive Date: 20240208
  Receipt Date: 20240208
  Transmission Date: 20240410
  Serious: Yes (Other)
  Sender: FDA-Public Use
  Company Number: None

PATIENT
  Age: 65 Year
  Sex: Male
  Weight: 79.83 kg

DRUGS (2)
  1. NEBIVOLOL [Suspect]
     Active Substance: NEBIVOLOL
     Indication: Hypertension
     Dosage: FREQUENCY : DAILY;?
     Route: 048
     Dates: start: 20210110, end: 20210124
  2. NEBIVOLOL [Suspect]
     Active Substance: NEBIVOLOL
     Indication: Coronary artery disease

REACTIONS (1)
  - Headache [None]

NARRATIVE: CASE EVENT DATE: 20210115
